FAERS Safety Report 24041070 (Version 1)
Quarter: 2024Q3

REPORT INFORMATION
  Report Type: Report from Study
  Country: FR (occurrence: FR)
  Receive Date: 20240702
  Receipt Date: 20240702
  Transmission Date: 20241016
  Serious: Yes (Life-Threatening, Other)
  Sender: SERVIER
  Company Number: FR-SERVIER-S21005539

PATIENT

DRUGS (6)
  1. PEGASPARGASE [Suspect]
     Active Substance: PEGASPARGASE
     Indication: Acute lymphocytic leukaemia
     Dosage: 625 IU, D12
     Route: 042
     Dates: start: 20180430
  2. DEXAMETHASONE [Suspect]
     Active Substance: DEXAMETHASONE
     Indication: Acute lymphocytic leukaemia
     Dosage: 2.2 MG, D8 TO D28
     Route: 048
     Dates: start: 20180426
  3. VINCRISTINE SULFATE [Suspect]
     Active Substance: VINCRISTINE SULFATE
     Indication: Acute lymphocytic leukaemia
     Dosage: 0.8 MG, ON D8, D15, AND D22
     Route: 042
     Dates: start: 20180426
  4. METHOTREXATE [Suspect]
     Active Substance: METHOTREXATE
     Indication: Acute lymphocytic leukaemia
     Dosage: UNK, D1 PREPHASE
     Route: 037
     Dates: start: 20180418, end: 20180418
  5. METHOTREXATE [Suspect]
     Active Substance: METHOTREXATE
     Dosage: 8 MG, D13
     Route: 037
     Dates: start: 20180502
  6. PREDNISOLONE [Suspect]
     Active Substance: PREDNISOLONE
     Indication: Acute lymphocytic leukaemia
     Dosage: UNK, D1-D7
     Route: 042
     Dates: start: 20180419, end: 20180425

REACTIONS (1)
  - Coagulopathy [Recovered/Resolved]

NARRATIVE: CASE EVENT DATE: 20180510
